FAERS Safety Report 24245048 (Version 1)
Quarter: 2024Q3

REPORT INFORMATION
  Report Type: Spontaneous
  Country: CN (occurrence: CN)
  Receive Date: 20240823
  Receipt Date: 20240823
  Transmission Date: 20241016
  Serious: Yes (Hospitalization)
  Sender: Hugel Aesthetics
  Company Number: CN-Hugel Aesthetics-2160763

PATIENT
  Age: 33 Year
  Sex: Female

DRUGS (3)
  1. LETYBO [Suspect]
     Active Substance: LETIBOTULINUMTOXINA-WLBG
  2. Saline solution?(product name not reported) [Concomitant]
  3. BOTOX [Concomitant]
     Active Substance: ONABOTULINUMTOXINA

REACTIONS (4)
  - Headache [Recovered/Resolved]
  - Respiratory muscle weakness [Recovering/Resolving]
  - Respiratory failure [Recovering/Resolving]
  - Botulism [Recovering/Resolving]

NARRATIVE: CASE EVENT DATE: 20240720
